FAERS Safety Report 7027049 (Version 4)
Quarter: 2013Q1

REPORT INFORMATION
  Report Type: Spontaneous
  Country: US (occurrence: US)
  Receive Date: 20090618
  Receipt Date: 20130129
  Transmission Date: 20140127
  Serious: Yes (Hospitalization, Other)
  Sender: FDA-Public Use
  Company Number: US-ROCHE-621709

PATIENT
  Age: 26 None
  Sex: Male
  Weight: 77.1 kg

DRUGS (4)
  1. ACCUTANE [Suspect]
     Indication: ACNE
     Route: 065
     Dates: start: 199603, end: 199611
  2. PRILOSEC [Concomitant]
  3. TUMS [Concomitant]
  4. PEPCID [Concomitant]

REACTIONS (13)
  - Perirectal abscess [Unknown]
  - Crohn^s disease [Unknown]
  - Inflammatory bowel disease [Unknown]
  - Anxiety [Not Recovered/Not Resolved]
  - Fistula [Unknown]
  - Intestinal obstruction [Unknown]
  - Intestinal haemorrhage [Unknown]
  - Duodenal ulcer [Recovered/Resolved]
  - Epistaxis [Unknown]
  - Irritable bowel syndrome [Unknown]
  - Gastrooesophageal reflux disease [Unknown]
  - Duodenitis [Unknown]
  - Gastritis [Unknown]
